FAERS Safety Report 25433567 (Version 2)
Quarter: 2025Q4

REPORT INFORMATION
  Report Type: Spontaneous
  Country: US (occurrence: US)
  Receive Date: 20250613
  Receipt Date: 20251122
  Transmission Date: 20260118
  Serious: No
  Sender: MDD OPERATIONS
  Company Number: US-MDD US Operations-MDD202501-000336

PATIENT
  Age: 69 Year
  Sex: Female
  Weight: 58.96 kg

DRUGS (13)
  1. APOKYN [Suspect]
     Active Substance: APOMORPHINE HYDROCHLORIDE
     Indication: Parkinson^s disease
     Dosage: NOT PROVIDED
     Dates: start: 20250109
  2. APOKYN [Suspect]
     Active Substance: APOMORPHINE HYDROCHLORIDE
     Dosage: SAMPLES
     Dates: start: 20250121
  3. ONAPGO [Suspect]
     Active Substance: APOMORPHINE HYDROCHLORIDE
     Indication: Parkinson^s disease
     Dosage: NOT PROVIDED
     Dates: start: 20250514
  4. ONAPGO [Suspect]
     Active Substance: APOMORPHINE HYDROCHLORIDE
     Indication: Dyskinesia
  5. ONAPGO [Suspect]
     Active Substance: APOMORPHINE HYDROCHLORIDE
     Indication: On and off phenomenon
     Dosage: 1 CARTRIDGE UNDER THE SKIN FOR 16 HOURS OR LESS EACH DAY. CONTINUOUS DOSE (MAX 6MG/HR OR 98MG/DAY) A
     Dates: start: 202505
  6. ONAPGO [Suspect]
     Active Substance: APOMORPHINE HYDROCHLORIDE
     Dosage: 98MG, 16 HOURS OR LESS DAILY
     Dates: start: 202505
  7. CREXONT [Concomitant]
     Active Substance: CARBIDOPA\LEVODOPA
     Dosage: EACH DF OF 70MG/280MG
  8. NUPLAZID [Concomitant]
     Active Substance: PIMAVANSERIN TARTRATE
     Dosage: NOT PROVIDED
  9. QUETIAPINE [Concomitant]
     Active Substance: QUETIAPINE
     Dosage: NOT PROVIDED
  10. PRAMIPEXOLE [Concomitant]
     Active Substance: PRAMIPEXOLE
     Dosage: NOT PROVIDED
  11. OMEPRAZOLE [Concomitant]
     Active Substance: OMEPRAZOLE
     Dosage: NOT PROVIDED
  12. SINEMET [Concomitant]
     Active Substance: CARBIDOPA\LEVODOPA
     Dosage: NOT PROVIDED
  13. CARBIDOPA\LEVODOPA [Concomitant]
     Active Substance: CARBIDOPA\LEVODOPA
     Dosage: NOT PROVIDED

REACTIONS (11)
  - Gastrooesophageal reflux disease [Recovered/Resolved]
  - Urinary tract infection [Not Recovered/Not Resolved]
  - Dyskinesia [Unknown]
  - Nausea [Recovered/Resolved]
  - Infusion site erythema [Recovered/Resolved]
  - Injection site erythema [Unknown]
  - Injection site irritation [Unknown]
  - Injection site nodule [Unknown]
  - Infusion site swelling [Unknown]
  - Infusion site irritation [Unknown]
  - Product dispensing error [Unknown]

NARRATIVE: CASE EVENT DATE: 20250601
